FAERS Safety Report 6445491-X (Version None)
Quarter: 2009Q4

REPORT INFORMATION
  Report Type: 
  Country: None (occurrence: None)
  Receive Date: 20091110
  Receipt Date: 20090811
  Transmission Date: 20100525
  Serious: No
  Sender: FDA-Public Use
  Company Number: 1000008142

PATIENT
  Age: 54 Year
  Sex: Female

DRUGS (12)
  1. SAVELLA [Suspect]
     Indication: BURNING SENSATION
     Dosage: SEE IMAGE
     Route: 048
     Dates: start: 20090701, end: 20090701
  2. SAVELLA [Suspect]
     Indication: NEUROPATHY PERIPHERAL
     Dosage: SEE IMAGE
     Route: 048
     Dates: start: 20090701, end: 20090701
  3. SAVELLA [Suspect]
     Indication: PAIN
     Dosage: SEE IMAGE
     Route: 048
     Dates: start: 20090701, end: 20090701
  4. SAVELLA [Suspect]
     Indication: BURNING SENSATION
     Dosage: SEE IMAGE
     Route: 048
     Dates: start: 20090701, end: 20090727
  5. SAVELLA [Suspect]
     Indication: NEUROPATHY PERIPHERAL
     Dosage: SEE IMAGE
     Route: 048
     Dates: start: 20090701, end: 20090727
  6. SAVELLA [Suspect]
     Indication: PAIN
     Dosage: SEE IMAGE
     Route: 048
     Dates: start: 20090701, end: 20090727
  7. SAVELLA [Suspect]
     Indication: BURNING SENSATION
     Dosage: SEE IMAGE
     Route: 048
     Dates: start: 20090728
  8. SAVELLA [Suspect]
     Indication: NEUROPATHY PERIPHERAL
     Dosage: SEE IMAGE
     Route: 048
     Dates: start: 20090728
  9. SAVELLA [Suspect]
     Indication: PAIN
     Dosage: SEE IMAGE
     Route: 048
     Dates: start: 20090728
  10. LYRICA [Concomitant]
  11. TRAZODONE HCL [Concomitant]
  12. ZOLPIDEM [Concomitant]

REACTIONS (3)
  - ASTHENIA [None]
  - BALANCE DISORDER [None]
  - FATIGUE [None]
